FAERS Safety Report 15583731 (Version 2)
Quarter: 2018Q4

REPORT INFORMATION
  Report Type: Spontaneous
  Country: TR (occurrence: TR)
  Receive Date: 20181105
  Receipt Date: 20181112
  Transmission Date: 20190205
  Serious: Yes (Other)
  Sender: FDA-Public Use
  Company Number: TR-SUN PHARMACEUTICAL INDUSTRIES LTD-2018RR-190214

PATIENT
  Age: 52 Day
  Sex: Male

DRUGS (7)
  1. MILRINONE [Suspect]
     Active Substance: MILRINONE
     Indication: CARDIAC DISORDER
     Route: 065
  2. DIGOXIN. [Suspect]
     Active Substance: DIGOXIN
     Indication: TACHYCARDIA INDUCED CARDIOMYOPATHY
  3. DIGOXIN. [Suspect]
     Active Substance: DIGOXIN
     Indication: JUNCTIONAL ECTOPIC TACHYCARDIA
     Dosage: 0.03 MG/DOSE X 2
     Route: 065
  4. TAMBOCOR [Suspect]
     Active Substance: FLECAINIDE ACETATE
     Indication: TACHYCARDIA INDUCED CARDIOMYOPATHY
  5. TAMBOCOR [Suspect]
     Active Substance: FLECAINIDE ACETATE
     Indication: JUNCTIONAL ECTOPIC TACHYCARDIA
     Dosage: 100 MG/M2, DAILY
     Route: 065
  6. AMIODARONE [Suspect]
     Active Substance: AMIODARONE
     Indication: JUNCTIONAL ECTOPIC TACHYCARDIA
     Dosage: 15 MG/KG, DAILY
     Route: 065
  7. AMIODARONE [Suspect]
     Active Substance: AMIODARONE
     Indication: TACHYCARDIA INDUCED CARDIOMYOPATHY

REACTIONS (3)
  - Hepatic failure [Recovered/Resolved]
  - Haemodynamic instability [Unknown]
  - Renal failure [Recovered/Resolved]
